FAERS Safety Report 13921705 (Version 1)
Quarter: 2017Q3

REPORT INFORMATION
  Report Type: Spontaneous
  Country: US (occurrence: None)
  Receive Date: 20170830
  Receipt Date: 20170830
  Transmission Date: 20171127
  Serious: No
  Sender: FDA-Public Use
  Company Number: None

PATIENT
  Age: 51 Year
  Sex: Female

DRUGS (1)
  1. COLGATE MAX FRESH [Suspect]
     Active Substance: SODIUM FLUORIDE

REACTIONS (2)
  - Tongue discomfort [None]
  - Oral discomfort [None]

NARRATIVE: CASE EVENT DATE: 20170801
